FAERS Safety Report 6184499-9 (Version None)
Quarter: 2009Q2

REPORT INFORMATION
  Report Type: 
  Country: None (occurrence: None)
  Receive Date: 20090508
  Receipt Date: 20090429
  Transmission Date: 20091009
  Serious: Yes (Hospitalization)
  Sender: FDA-Public Use
  Company Number: US-NOVOPROD-286720

PATIENT
  Age: 89 Year
  Sex: Male

DRUGS (1)
  1. NOVOLOG [Suspect]
     Indication: INSULIN-REQUIRING TYPE 2 DIABETES MELLITUS
     Dosage: SLIDING SCALE
     Route: 058
     Dates: start: 20060101

REACTIONS (4)
  - BLOOD GLUCOSE INCREASED [None]
  - CYSTITIS [None]
  - EXPIRED DRUG ADMINISTERED [None]
  - MYOCARDIAL INFARCTION [None]
